FAERS Safety Report 6683918-9 (Version None)
Quarter: 2010Q2

REPORT INFORMATION
  Report Type: 
  Country: None (occurrence: None)
  Receive Date: 20100416
  Receipt Date: 20100406
  Transmission Date: 20101027
  Serious: Yes (Other)
  Sender: FDA-Public Use
  Company Number: US-PFIZER INC-2010043840

PATIENT
  Sex: Female

DRUGS (3)
  1. LIPITOR [Suspect]
     Dosage: UNK
  2. ACCUPRIL [Suspect]
     Dosage: UNK
  3. NEURONTIN [Suspect]
     Dosage: UNK

REACTIONS (1)
  - MEMORY IMPAIRMENT [None]
